FAERS Safety Report 25263601 (Version 1)
Quarter: 2025Q2

REPORT INFORMATION
  Report Type: Other
  Country: CA (occurrence: CA)
  Receive Date: 20250502
  Receipt Date: 20250502
  Transmission Date: 20250717
  Serious: Yes (Hospitalization, Other)
  Sender: PFIZER
  Company Number: CA-PFIZER INC-202500092131

PATIENT
  Age: 40 Year
  Sex: Male

DRUGS (2)
  1. HYDROCORTISONE [Suspect]
     Active Substance: HYDROCORTISONE
     Indication: Hypopituitarism
     Route: 065
  2. SODIUM CHLORIDE [Concomitant]
     Active Substance: SODIUM CHLORIDE
     Route: 042

REACTIONS (7)
  - Dehydration [Unknown]
  - Hyponatraemia [Unknown]
  - Hypovolaemia [Unknown]
  - Mineralocorticoid deficiency [Unknown]
  - Nausea [Unknown]
  - Treatment noncompliance [Unknown]
  - Vomiting [Unknown]
